FAERS Safety Report 7423662-3 (Version None)
Quarter: 2011Q2

REPORT INFORMATION
  Report Type: 
  Country: None (occurrence: None)
  Receive Date: 20110413
  Receipt Date: 20110413
  Transmission Date: 20111010
  Serious: Yes (Hospitalization)
  Sender: FDA-Public Use
  Company Number: None

PATIENT
  Sex: Female

DRUGS (1)
  1. MULTAQ [Suspect]
     Indication: ATRIAL FIBRILLATION
     Dosage: 400 MG BID PO (10 DOSES)
     Route: 048
     Dates: start: 20110404, end: 20110409

REACTIONS (1)
  - HEPATIC ENZYME INCREASED [None]
